FAERS Safety Report 9197563 (Version 1)
Quarter: 2013Q1

REPORT INFORMATION
  Report Type: Spontaneous
  Country: AU (occurrence: AU)
  Receive Date: 20130328
  Receipt Date: 20130328
  Transmission Date: 20140127
  Serious: Yes (Hospitalization, Other)
  Sender: FDA-Public Use
  Company Number: AU-B.I. PHARMACEUTICALS,INC./RIDGEFIELD-2013-AU-00332AU

PATIENT
  Sex: Male

DRUGS (15)
  1. PRADAXA [Suspect]
     Indication: ATRIAL FIBRILLATION
     Dates: start: 201109, end: 201301
  2. ALDACTONE [Concomitant]
     Dosage: 25 MG
     Route: 048
  3. BUDAMAX [Concomitant]
     Dosage: 64 MCG
     Route: 045
  4. COVERSYL [Concomitant]
     Indication: HYPERTENSION
     Dosage: 5 MG
     Route: 048
  5. CRAMPEZE [Concomitant]
     Dosage: 150MG/125MG/25MG/10MG/200MG
     Route: 048
  6. EUTROXSIG [Concomitant]
     Dosage: 150 MCG
     Route: 048
  7. LASIX [Concomitant]
     Dosage: 40 MG
     Route: 048
  8. LIPITOR [Concomitant]
     Dosage: 40 MG
     Route: 048
  9. NEO-B12 [Concomitant]
     Dosage: 1MG/ML
     Route: 030
  10. NEXIUM [Concomitant]
     Dosage: 20 MG
     Route: 048
  11. OSTEVIT D [Concomitant]
     Dosage: 50 MCG
     Route: 048
  12. PANADOL OSTEO [Concomitant]
     Dosage: 3990 MG
     Route: 048
  13. SIGMAXIN-PG [Concomitant]
     Dosage: 62.5 MCG
     Route: 048
  14. TEMAZE [Concomitant]
     Dosage: 10 MG
     Route: 048
  15. SPIRIVA [Concomitant]
     Dosage: 18 MCG
     Route: 055

REACTIONS (6)
  - Gastrointestinal haemorrhage [Recovered/Resolved]
  - Bladder cancer [Unknown]
  - Renal impairment [Unknown]
  - Malaise [Recovered/Resolved]
  - Fatigue [Recovered/Resolved]
  - Diarrhoea [Recovered/Resolved]
